FAERS Safety Report 18491196 (Version 1)
Quarter: 2020Q4

REPORT INFORMATION
  Report Type: Spontaneous
  Country: DE (occurrence: DE)
  Receive Date: 20201111
  Receipt Date: 20201111
  Transmission Date: 20210114
  Serious: Yes (Hospitalization)
  Sender: FDA-Public Use
  Company Number: DE-TEVA-2020-DE-1846756

PATIENT
  Age: 42 Year
  Sex: Female

DRUGS (5)
  1. PREDNISOLON [Suspect]
     Active Substance: PREDNISOLONE
     Dosage: 100 MILLIGRAM DAILY; 1-0-0-0
  2. COLECALCIFEROL [Concomitant]
     Active Substance: CHOLECALCIFEROL
     Dosage: 1000 IU (INTERNATIONAL UNIT) DAILY; 1-0-0-0
  3. CEFPODOXIM [Suspect]
     Active Substance: CEFPODOXIME PROXETIL
     Dosage: 400 MILLIGRAM DAILY; 1-0-1-0
  4. AZATHIOPRIN [Concomitant]
     Active Substance: AZATHIOPRINE
     Dosage: 50 MILLIGRAM DAILY; 1-0-0-0
  5. METRONIDAZOL [Suspect]
     Active Substance: METRONIDAZOLE
     Dosage: 800 MILLIGRAM DAILY; 1-0-1-0

REACTIONS (3)
  - Abdominal pain upper [Unknown]
  - Nausea [Unknown]
  - Vomiting [Unknown]
